FAERS Safety Report 19558487 (Version 1)
Quarter: 2021Q3

REPORT INFORMATION
  Report Type: Report from Study
  Country: US (occurrence: US)
  Receive Date: 20210715
  Receipt Date: 20210715
  Transmission Date: 20211014
  Serious: Yes (Hospitalization)
  Sender: FDA-Public Use
  Company Number: US-BAYER-2021-169814

PATIENT
  Age: 54 Year
  Sex: Male

DRUGS (1)
  1. STIVARGA [Suspect]
     Active Substance: REGORAFENIB
     Indication: COLORECTAL CANCER
     Dosage: DAILY DOSE 120 MG FOR 1?21 DAYS,  THEN 7 DAYS OFF A 28?DAY CYCLE, WITH A LOW?FAT MEAL
     Route: 048
     Dates: start: 20210625

REACTIONS (7)
  - Fatigue [Not Recovered/Not Resolved]
  - Off label use [None]
  - Infection [Recovering/Resolving]
  - Hospitalisation [None]
  - Pain [Not Recovered/Not Resolved]
  - Asthenia [Not Recovered/Not Resolved]
  - Malaise [Not Recovered/Not Resolved]

NARRATIVE: CASE EVENT DATE: 20210625
